FAERS Safety Report 10237714 (Version 1)
Quarter: 2014Q2

REPORT INFORMATION
  Report Type: Spontaneous
  Country: JP (occurrence: JP)
  Receive Date: 20140616
  Receipt Date: 20140616
  Transmission Date: 20141212
  Serious: Yes (Disabling)
  Sender: FDA-Public Use
  Company Number: JP-AMGEN-JPNSP2013093768

PATIENT
  Age: 72 Year
  Sex: Male

DRUGS (12)
  1. REGPARA [Suspect]
     Indication: HYPERPARATHYROIDISM SECONDARY
     Dosage: 25 MG, UNK
     Route: 048
  2. PLAVIX [Suspect]
     Indication: PRODUCT USED FOR UNKNOWN INDICATION
     Dosage: UNK
     Route: 048
  3. LYRICA [Suspect]
     Indication: PRODUCT USED FOR UNKNOWN INDICATION
     Dosage: UNK
     Route: 048
  4. RABEPRAZOLE NA [Concomitant]
     Dosage: UNK
     Route: 048
  5. BAYASPIRIN [Concomitant]
     Dosage: UNK
     Route: 048
  6. TRAZENTA [Concomitant]
     Dosage: UNK
     Route: 048
  7. BENZALIN                           /00036201/ [Concomitant]
     Dosage: UNK
     Route: 048
  8. WARFARIN [Concomitant]
     Dosage: UNK
     Route: 048
  9. NIKORANMART [Concomitant]
     Dosage: UNK
     Route: 048
  10. RENAGEL                            /01459901/ [Concomitant]
     Dosage: UNK
     Route: 048
  11. CALTAN [Concomitant]
     Dosage: UNK
     Route: 048
  12. ACETAMINOPHEN [Concomitant]
     Dosage: UNK
     Route: 065

REACTIONS (1)
  - Diabetic gangrene [Recovering/Resolving]
